FAERS Safety Report 24111692 (Version 1)
Quarter: 2024Q3

REPORT INFORMATION
  Report Type: Spontaneous
  Country: ES (occurrence: ES)
  Receive Date: 20240718
  Receipt Date: 20240718
  Transmission Date: 20241017
  Serious: Yes (Other)
  Sender: PFIZER
  Company Number: None

PATIENT
  Age: 68 Year
  Sex: Male

DRUGS (5)
  1. SULFASALAZINE [Suspect]
     Active Substance: SULFASALAZINE
     Indication: Psoriatic arthropathy
     Dosage: 500 MG, DAILY
     Route: 048
     Dates: start: 20240506, end: 20240527
  2. PREDNISONE [Concomitant]
     Active Substance: PREDNISONE
     Indication: Psoriatic arthropathy
     Dosage: 2.5 MG, DAILY
     Route: 048
     Dates: start: 20231003
  3. ARROX [MELOXICAM] [Concomitant]
     Indication: Dyslipidaemia
     Dosage: 20 MG, 1X/DAY
     Route: 048
     Dates: start: 20180627
  4. DAPAGLIFLOZIN [Concomitant]
     Active Substance: DAPAGLIFLOZIN
     Indication: Type 2 diabetes mellitus
     Dosage: 10 MG, DAILY
     Route: 048
     Dates: start: 202404
  5. DOXICLAT [DOXYCYCLINE HYCLATE] [Concomitant]
     Indication: Acne
     Dosage: 200 MG, DAILY
     Route: 048
     Dates: start: 20240306

REACTIONS (3)
  - Hypertransaminasaemia [Recovering/Resolving]
  - Hyperbilirubinaemia [Recovering/Resolving]
  - Off label use [Unknown]

NARRATIVE: CASE EVENT DATE: 20240506
